FAERS Safety Report 5707851-1 (Version None)
Quarter: 2008Q2

REPORT INFORMATION
  Report Type: 
  Country: None (occurrence: None)
  Receive Date: 20080414
  Receipt Date: 20080310
  Transmission Date: 20081010
  Serious: Yes (Death, Other)
  Sender: FDA-Public Use
  Company Number: 2008S1003951

PATIENT
  Age: 40 Year
  Sex: Male

DRUGS (9)
  1. METFORMIN HCL [Suspect]
     Indication: DIABETES MELLITUS
     Dosage: ORAL
     Route: 048
  2. GLYBURIDE [Suspect]
  3. SPIRAMYCIN (SPIRAMYCIN) [Concomitant]
  4. RISPERDAL [Concomitant]
  5. FUROSEMIDE [Concomitant]
  6. CITALOPRAM HYDROBROMIDE [Concomitant]
  7. CORDARONE [Concomitant]
  8. PREVISCAN [Concomitant]
  9. CIPROFLOXACIN [Concomitant]

REACTIONS (2)
  - HEPATITIS [None]
  - RENAL FAILURE [None]
